FAERS Safety Report 10016083 (Version 4)
Quarter: 2015Q3

REPORT INFORMATION
  Report Type: Spontaneous
  Country: US (occurrence: US)
  Receive Date: 20140317
  Receipt Date: 20150730
  Transmission Date: 20151125
  Serious: No
  Sender: FDA-Public Use
  Company Number: US-009507513-1403USA003453

PATIENT
  Sex: Male

DRUGS (2)
  1. PROPECIA [Suspect]
     Active Substance: FINASTERIDE
     Indication: ALOPECIA
     Dosage: 1 MG, QD
     Route: 048
     Dates: start: 1999, end: 20060707
  2. TOPAMAX [Concomitant]
     Active Substance: TOPIRAMATE
     Indication: PRODUCT USED FOR UNKNOWN INDICATION
     Dosage: 100 MG, BID
     Route: 065

REACTIONS (20)
  - Sexual dysfunction [Not Recovered/Not Resolved]
  - Gastrooesophageal reflux disease [Unknown]
  - Sinus headache [Unknown]
  - Semen volume decreased [Unknown]
  - Libido decreased [Unknown]
  - Ejaculation disorder [Unknown]
  - Depression [Not Recovered/Not Resolved]
  - Hyperthyroidism [Unknown]
  - Skin infection [Unknown]
  - Rhinitis allergic [Unknown]
  - Anxiety [Not Recovered/Not Resolved]
  - Pollakiuria [Unknown]
  - Marital problem [Not Recovered/Not Resolved]
  - Erectile dysfunction [Not Recovered/Not Resolved]
  - Hypercholesterolaemia [Unknown]
  - Type 2 diabetes mellitus [Unknown]
  - Basedow^s disease [Unknown]
  - Sleep apnoea syndrome [Unknown]
  - Pain in extremity [Unknown]
  - Rash pustular [Unknown]

NARRATIVE: CASE EVENT DATE: 2001
